FAERS Safety Report 8171110 (Version 3)
Quarter: 2012Q4

REPORT INFORMATION
  Report Type: 
  Country: US (occurrence: US)
  Receive Date: 20111006
  Receipt Date: 20120920
  Transmission Date: 20130627
  Serious: No
  Sender: FDA-Public Use
  Company Number: US-B.I. PHARMACEUTICALS,INC./RIDGEFIELD-2011-BP-23127BP

PATIENT
  Age: 71 None
  Sex: Female

DRUGS (10)
  1. PRADAXA [Suspect]
     Indication: ATRIAL FIBRILLATION
     Dosage: 300 mg
     Route: 048
     Dates: start: 2009
  2. SIMVASTATIN [Suspect]
     Indication: BLOOD CHOLESTEROL INCREASED
     Dosage: 5 mg
  3. AMLODIPINE [Concomitant]
     Indication: ATRIAL FIBRILLATION
     Route: 048
  4. TRAZODONE [Concomitant]
     Indication: INSOMNIA
     Dosage: 100 mg
     Route: 048
  5. VENLAFAXINE [Concomitant]
     Indication: DEPRESSION
  6. PROPANOLOL [Concomitant]
     Indication: ATRIAL FIBRILLATION
     Dosage: 10 mg
     Route: 048
  7. APAP/BUTALBITAL/CAFFEINE [Concomitant]
     Indication: MIGRAINE
     Route: 048
  8. DIGOXIN [Concomitant]
     Indication: ATRIAL FIBRILLATION
     Dosage: 25 mcg
     Route: 048
  9. VITAMINS [Concomitant]
     Indication: SUPPLEMENTATION THERAPY
  10. BUTALBITAL [Concomitant]
     Indication: PAIN
     Route: 048

REACTIONS (8)
  - Myalgia [Unknown]
  - Muscle fatigue [Unknown]
  - Fatigue [Unknown]
  - Arthralgia [Not Recovered/Not Resolved]
  - Dyspepsia [Not Recovered/Not Resolved]
  - Headache [Not Recovered/Not Resolved]
  - Salivary hypersecretion [Recovered/Resolved]
  - Sensation of foreign body [Recovered/Resolved]
